FAERS Safety Report 10881913 (Version 1)
Quarter: 2015Q1

REPORT INFORMATION
  Report Type: Spontaneous
  Country: US (occurrence: None)
  Receive Date: 20150227
  Receipt Date: 20150227
  Transmission Date: 20150721
  Serious: Yes (Other)
  Sender: FDA-Public Use
  Company Number: None

PATIENT
  Age: 41 Year
  Sex: Male
  Weight: 101.15 kg

DRUGS (1)
  1. REMICADE [Suspect]
     Active Substance: INFLIXIMAB
     Indication: COLITIS ULCERATIVE
     Dosage: 5 MG/KG  94 WEEKS  IV
     Route: 042
     Dates: start: 20150223

REACTIONS (5)
  - Pruritus [None]
  - Urticaria [None]
  - Dyspnoea [None]
  - Speech disorder [None]
  - Infusion related reaction [None]

NARRATIVE: CASE EVENT DATE: 20150223
